FAERS Safety Report 10400928 (Version 13)
Quarter: 2022Q1

REPORT INFORMATION
  Report Type: Other
  Country: DE (occurrence: None)
  Receive Date: 20140821
  Receipt Date: 20220218
  Transmission Date: 20220423
  Serious: Yes (Other)
  Sender: FDA-Public Use
  Company Number: DE-ROCHE-1452727

PATIENT

DRUGS (7)
  1. BEVACIZUMAB [Suspect]
     Active Substance: BEVACIZUMAB
     Indication: Colorectal cancer metastatic
     Dosage: OVER 90 MIN
     Route: 042
  2. BEVACIZUMAB [Suspect]
     Active Substance: BEVACIZUMAB
     Route: 042
  3. BEVACIZUMAB [Suspect]
     Active Substance: BEVACIZUMAB
     Route: 042
  4. LEUCOVORIN [Suspect]
     Active Substance: LEUCOVORIN
     Indication: Colorectal cancer metastatic
     Route: 042
  5. IRINOTECAN [Suspect]
     Active Substance: IRINOTECAN
     Indication: Colorectal cancer metastatic
     Route: 042
  6. FLUOROURACIL [Suspect]
     Active Substance: FLUOROURACIL
     Indication: Colorectal cancer metastatic
     Route: 040
  7. FLUOROURACIL [Suspect]
     Active Substance: FLUOROURACIL
     Route: 041

REACTIONS (48)
  - Febrile neutropenia [Unknown]
  - Ileus [Unknown]
  - Hypotension [Unknown]
  - Gamma-glutamyltransferase increased [Unknown]
  - Dehydration [Unknown]
  - Hyponatraemia [Unknown]
  - Infected fistula [Unknown]
  - Activated partial thromboplastin time prolonged [Unknown]
  - Myocardial ischaemia [Unknown]
  - Cholangitis [Unknown]
  - Device related infection [Unknown]
  - Gastrointestinal perforation [Unknown]
  - Neurotoxicity [Unknown]
  - Weight increased [Unknown]
  - Impaired healing [Unknown]
  - Abdominal wall haematoma [Unknown]
  - Amenorrhoea [Unknown]
  - Cardiac failure [Unknown]
  - Cerebral ischaemia [Unknown]
  - Dyspnoea exertional [Unknown]
  - Flatulence [Unknown]
  - Hemiparesis [Unknown]
  - Hyperhidrosis [Unknown]
  - Hypermagnesaemia [Unknown]
  - Hypernatraemia [Unknown]
  - Inflammatory marker increased [Unknown]
  - Ligament rupture [Unknown]
  - Mental disorder [Unknown]
  - Metastasis [Unknown]
  - Proteinuria [Unknown]
  - Sepsis [Unknown]
  - Speech disorder [Unknown]
  - Subileus [Unknown]
  - Tumour perforation [Unknown]
  - VIth nerve paralysis [Unknown]
  - Diarrhoea [Unknown]
  - Oedema [Unknown]
  - Fatigue [Unknown]
  - Haematotoxicity [Unknown]
  - Hypertension [Unknown]
  - Infection [Unknown]
  - Hepatotoxicity [Unknown]
  - Stomatitis [Unknown]
  - Mucosal inflammation [Unknown]
  - Nausea [Unknown]
  - Constipation [Unknown]
  - Pain [Unknown]
  - Vomiting [Unknown]
